FAERS Safety Report 4332565-2 (Version None)
Quarter: 2004Q1

REPORT INFORMATION
  Report Type: 
  Country: None (occurrence: None)
  Receive Date: 20040330
  Receipt Date: 20040319
  Transmission Date: 20041129
  Serious: Yes (Hospitalization)
  Sender: FDA-Public Use
  Company Number: DE-JNJFOC-20040304759

PATIENT
  Sex: Female

DRUGS (2)
  1. REMICADE [Suspect]
     Indication: CHONDRITIS
     Dosage: 3 INFUSIONS
  2. METHOTREXATE [Concomitant]

REACTIONS (4)
  - ANXIETY [None]
  - DEMYELINATION [None]
  - DIZZINESS [None]
  - DYSPNOEA [None]
